FAERS Safety Report 8604856 (Version 2)
Quarter: 2014Q2

REPORT INFORMATION
  Report Type: Spontaneous
  Country: JP (occurrence: JP)
  Receive Date: 20120608
  Receipt Date: 20140620
  Transmission Date: 20141212
  Serious: Yes (Other)
  Sender: FDA-Public Use
  Company Number: PHHY2012JP047672

PATIENT
  Sex: Female

DRUGS (15)
  1. NEORAL [Suspect]
     Dosage: 150 MG, UNK
     Route: 064
     Dates: start: 20100824, end: 20101028
  2. NEORAL [Suspect]
     Dosage: 125 MG, UNK
     Route: 064
     Dates: start: 20101029, end: 20101118
  3. NEORAL [Suspect]
     Dosage: 100 MG, UNK
     Route: 064
     Dates: start: 20101119, end: 20110113
  4. NEORAL [Suspect]
     Dosage: 75 MG, UNK
     Route: 064
     Dates: start: 20110114, end: 20110505
  5. NEORAL [Suspect]
     Dosage: 50 MG, UNK
     Route: 064
     Dates: start: 20110506, end: 20110519
  6. NEORAL [Suspect]
     Dosage: 25 MG, UNK
     Route: 064
     Dates: start: 20110520
  7. PREDNISOLONE [Suspect]
     Dosage: 7.5 MG, UNK
     Route: 064
     Dates: start: 20100824, end: 20101014
  8. PREDNISOLONE [Suspect]
     Dosage: 20 MG, UNK
     Route: 064
     Dates: start: 20101015, end: 20101028
  9. PREDNISOLONE [Suspect]
     Dosage: 12.5 MG, UNK
     Route: 064
     Dates: start: 20101029, end: 20110203
  10. PREDNISOLONE [Suspect]
     Dosage: 20 MG, UNK
     Route: 064
     Dates: start: 20110204, end: 20110310
  11. PREDNISOLONE [Suspect]
     Dosage: 30 MG, UNK
     Route: 064
     Dates: start: 20110311, end: 20110324
  12. PREDNISOLONE [Suspect]
     Dosage: 20 MG, UNK
     Route: 064
     Dates: start: 20110325, end: 20110616
  13. OXYTOCIN [Suspect]
     Route: 064
  14. CYCLOPHOSPHAMIDE [Suspect]
     Route: 064
  15. MIZORIBINE [Suspect]
     Route: 064

REACTIONS (4)
  - Low birth weight baby [Unknown]
  - Foetal growth restriction [Unknown]
  - Small for dates baby [Unknown]
  - Foetal exposure during pregnancy [Unknown]
